FAERS Safety Report 7189903-5 (Version None)
Quarter: 2010Q4

REPORT INFORMATION
  Report Type: 
  Country: None (occurrence: None)
  Receive Date: 20101123
  Receipt Date: 20100929
  Transmission Date: 20110411
  Serious: No
  Sender: FDA-Public Use
  Company Number: 019660

PATIENT
  Sex: Male
  Weight: 97.1 kg

DRUGS (4)
  1. CIMZIA [Suspect]
     Indication: CROHN'S DISEASE
     Dosage: (TWO SHOTS; EVERY MONTH SUBCUTANEOUS)
     Route: 058
     Dates: start: 20090901
  2. VYTORIN [Concomitant]
  3. FLOMAX /01280302/ [Concomitant]
  4. PAXIL [Concomitant]

REACTIONS (1)
  - ABDOMINAL PAIN [None]
